FAERS Safety Report 4920101-9 (Version None)
Quarter: 2006Q1

REPORT INFORMATION
  Report Type: 
  Country: None (occurrence: None)
  Receive Date: 20060216
  Receipt Date: 20060131
  Transmission Date: 20060701
  Serious: Yes (Other)
  Sender: FDA-Public Use
  Company Number: 06-000127

PATIENT
  Age: 36 Year
  Sex: Male

DRUGS (3)
  1. DOVONEX [Suspect]
     Indication: PSORIASIS
     Dosage: , QD, TOPICAL
     Route: 061
     Dates: start: 20060122, end: 20060125
  2. LEVOTHYROXINE SODIUM [Concomitant]
  3. LAMOTRIGINE [Concomitant]

REACTIONS (6)
  - APPLICATION SITE ERYTHEMA [None]
  - PYREXIA [None]
  - RASH [None]
  - SKIN EXFOLIATION [None]
  - SKIN HAEMORRHAGE [None]
  - SOMNOLENCE [None]
